FAERS Safety Report 13378144 (Version 1)
Quarter: 2017Q1

REPORT INFORMATION
  Report Type: Report from Study
  Country: US (occurrence: US)
  Receive Date: 20170328
  Receipt Date: 20170328
  Transmission Date: 20170429
  Serious: Yes (Other)
  Sender: FDA-Public Use
  Company Number: US-GILEAD-2017-0263920

PATIENT
  Age: 44 Year
  Sex: Male

DRUGS (1)
  1. EFAVIRENZ/EMTRICITABINE/TENOFOVIR DISOPROXIL FUMARATE [Suspect]
     Active Substance: EFAVIRENZ\EMTRICITABINE\TENOFOVIR DISOPROXIL FUMARATE
     Indication: HIV INFECTION
     Dosage: 1100 MG, UNK
     Route: 048
     Dates: start: 201001, end: 201612

REACTIONS (2)
  - Neuropathy peripheral [Unknown]
  - Hodgkin^s disease stage IV [Unknown]

NARRATIVE: CASE EVENT DATE: 2015
